FAERS Safety Report 22393250 (Version 2)
Quarter: 2023Q2

REPORT INFORMATION
  Report Type: Spontaneous
  Country: US (occurrence: None)
  Receive Date: 20230601
  Receipt Date: 20230613
  Transmission Date: 20230722
  Serious: No
  Sender: FDA-Public Use
  Company Number: 2023A093563

PATIENT
  Age: 28504 Day
  Sex: Female

DRUGS (2)
  1. SYMBICORT [Suspect]
     Active Substance: BUDESONIDE\FORMOTEROL FUMARATE DIHYDRATE
     Dosage: 120 INHALATIONS, 160 MCG 2 PUFFS TWO TIMES A DAY AS NEEDED
     Route: 055
     Dates: start: 20230419
  2. SYMBICORT [Suspect]
     Active Substance: BUDESONIDE\FORMOTEROL FUMARATE DIHYDRATE
     Dosage: 120 INHALATIONS, 160 MCG 2 PUFFS TWO TIMES A DAY AS NEEDED
     Route: 055
     Dates: start: 20230404

REACTIONS (8)
  - Dysphagia [Unknown]
  - Swollen tongue [Unknown]
  - Oropharyngeal pain [Unknown]
  - Hypersensitivity [Unknown]
  - Drug dose omission by device [Unknown]
  - Wrong technique in device usage process [Unknown]
  - Off label use [Unknown]
  - Device malfunction [Unknown]

NARRATIVE: CASE EVENT DATE: 20230419
